FAERS Safety Report 11316372 (Version 1)
Quarter: 2015Q3

REPORT INFORMATION
  Report Type: Spontaneous
  Country: US (occurrence: US)
  Receive Date: 20150728
  Receipt Date: 20150728
  Transmission Date: 20151125
  Serious: Yes (Death, Life-Threatening)
  Sender: FDA-Public Use
  Company Number: US-FRESENIUS KABI-FK201503524

PATIENT
  Age: 52 Year
  Sex: Female

DRUGS (3)
  1. POLYMYXIN B (MANUFACTURER UNKNOWN) [Suspect]
     Active Substance: POLYMYXIN B
     Indication: SEPSIS
     Route: 041
  2. POLYMYXIN B (MANUFACTURER UNKNOWN) [Suspect]
     Active Substance: POLYMYXIN B
     Indication: PNEUMONIA KLEBSIELLA
  3. COLISTIN [Suspect]
     Active Substance: COLISTIN
     Indication: PRODUCT USED FOR UNKNOWN INDICATION
     Route: 065

REACTIONS (10)
  - Pleural effusion [Fatal]
  - Pulseless electrical activity [None]
  - Pulmonary oedema [Fatal]
  - Hepatic congestion [Fatal]
  - Paralysis [Fatal]
  - Cardiac failure congestive [Fatal]
  - Neurotoxicity [Fatal]
  - Pulmonary congestion [None]
  - Cardio-respiratory arrest [Fatal]
  - Visceral congestion [None]
